FAERS Safety Report 4865686-6 (Version None)
Quarter: 2005Q4

REPORT INFORMATION
  Report Type: 
  Country: None (occurrence: None)
  Receive Date: 20051220
  Receipt Date: 20051205
  Transmission Date: 20060501
  Serious: Yes (Hospitalization)
  Sender: FDA-Public Use
  Company Number: 2005-02378

PATIENT
  Age: 64 Year
  Sex: Male
  Weight: 105.2 kg

DRUGS (9)
  1. VELCADE [Suspect]
     Indication: MULTIPLE MYELOMA
     Dosage: 1.60 MG/M2, INTRAVENOUS
     Route: 042
     Dates: start: 20050617, end: 20051104
  2. FLEXERIL [Concomitant]
  3. COMPAZINE [Concomitant]
  4. ZOVIRAX [Concomitant]
  5. VALTREX [Concomitant]
  6. LORCET-HD [Concomitant]
  7. ZOVIRAX [Concomitant]
  8. NEURONTIN [Concomitant]
  9. LIDODERM (LIDOCAINE) PATCH [Concomitant]

REACTIONS (9)
  - ANGINA UNSTABLE [None]
  - AORTIC ARTERIOSCLEROSIS [None]
  - ATELECTASIS [None]
  - CARDIAC DISORDER [None]
  - CORONARY ARTERY OCCLUSION [None]
  - CORONARY ARTERY STENOSIS [None]
  - EJECTION FRACTION DECREASED [None]
  - HYPOTENSION [None]
  - SCAR [None]
